FAERS Safety Report 7930110-3 (Version None)
Quarter: 2011Q4

REPORT INFORMATION
  Report Type: 
  Country: None (occurrence: None)
  Receive Date: 20111108
  Receipt Date: 20100928
  Transmission Date: 20120403
  Serious: Yes (Other)
  Sender: FDA-Public Use
  Company Number: PHHY2010US90444

PATIENT
  Age: 61 Year
  Sex: Male
  Weight: 74.8 kg

DRUGS (1)
  1. ZOMETA [Suspect]
     Indication: PROSTATE CANCER
     Dosage: INFUSION

REACTIONS (1)
  - NEOPLASM MALIGNANT [None]
